FAERS Safety Report 12969407 (Version 2)
Quarter: 2017Q1

REPORT INFORMATION
  Report Type: Spontaneous
  Country: DE (occurrence: DE)
  Receive Date: 20161123
  Receipt Date: 20170306
  Transmission Date: 20170428
  Serious: Yes (Hospitalization, Other)
  Sender: FDA-Public Use
  Company Number: DE-BRISTOL-MYERS SQUIBB COMPANY-BMS-2016-099346

PATIENT
  Sex: Male

DRUGS (3)
  1. ABILIFY [Suspect]
     Active Substance: ARIPIPRAZOLE
     Indication: ABNORMAL BEHAVIOUR
     Dosage: 2 ML, UNK
     Route: 065
  2. ABILIFY [Suspect]
     Active Substance: ARIPIPRAZOLE
     Indication: PRODUCT USED FOR UNKNOWN INDICATION
     Dosage: UNK
     Route: 065
  3. ABILIFY [Suspect]
     Active Substance: ARIPIPRAZOLE
     Indication: ABNORMAL BEHAVIOUR
     Dosage: 2.5 MG, UNK
     Route: 065

REACTIONS (13)
  - Withdrawal syndrome [Unknown]
  - Depression [Unknown]
  - Weight increased [Unknown]
  - Abdominal distension [Unknown]
  - Hepatic enzyme increased [Unknown]
  - Circumstance or information capable of leading to medication error [Unknown]
  - Suicide attempt [Unknown]
  - Product use issue [Unknown]
  - Treatment noncompliance [Unknown]
  - Off label use [Unknown]
  - Hepatic steatosis [Unknown]
  - Feeling abnormal [Unknown]
  - Asthenia [Unknown]
